FAERS Safety Report 6349538-0 (Version None)
Quarter: 2009Q3

REPORT INFORMATION
  Report Type: 
  Country: None (occurrence: None)
  Receive Date: 20090911
  Receipt Date: 20090901
  Transmission Date: 20100115
  Serious: Yes (Hospitalization)
  Sender: FDA-Public Use
  Company Number: FR-ROCHE-625367

PATIENT
  Sex: Female

DRUGS (5)
  1. MIRCERA [Suspect]
     Dosage: RECEIVED ON 2 OCT, 5NOV, 2 DEC, 5 JAN 2009
     Route: 058
     Dates: start: 20081002, end: 20090105
  2. ARANESP [Suspect]
     Dosage: FORM INJECTABLE SOLUTION
     Route: 058
     Dates: start: 20080801, end: 20081001
  3. NEORECORMON [Concomitant]
  4. ARAVA [Concomitant]
     Indication: RHEUMATOID ARTHRITIS
     Dates: start: 20070301
  5. ARAVA [Concomitant]
     Dates: start: 20071101, end: 20081001

REACTIONS (1)
  - APLASIA PURE RED CELL [None]
